FAERS Safety Report 4829951-0 (Version None)
Quarter: 2005Q4

REPORT INFORMATION
  Report Type: 
  Country: None (occurrence: None)
  Receive Date: 20051115
  Receipt Date: 20051102
  Transmission Date: 20060501
  Serious: Yes (Hospitalization, Other)
  Sender: FDA-Public Use
  Company Number: CA-2005-002422

PATIENT
  Age: 45 Year
  Sex: Male

DRUGS (14)
  1. BETASERON [Suspect]
     Indication: RELAPSING-REMITTING MULTIPLE SCLEROSIS
     Dosage: 8 MIU, EVERY 2D, SUBCUTANEOUS
     Route: 058
     Dates: start: 20030311
  2. EFFEXOR [Concomitant]
  3. VIAGRA [Concomitant]
  4. BUPROPION HCL [Concomitant]
  5. BACLOFEN [Concomitant]
  6. COLACE (DOCUSATE SODIUM) [Concomitant]
  7. SENOKOT (SENNA ALEXANDRINA FRUIT) [Concomitant]
  8. LACTULOSE [Concomitant]
  9. DILAUDID [Concomitant]
  10. ATIVAN [Concomitant]
  11. NAPROSYN [Concomitant]
  12. VITAMIN D [Concomitant]
  13. OMEGA 3-6-9 (FISH OIL) [Concomitant]
  14. PREDNISONE [Concomitant]

REACTIONS (8)
  - BALANCE DISORDER [None]
  - FALL [None]
  - MALAISE [None]
  - METASTASES TO BLADDER [None]
  - METASTASES TO BONE [None]
  - NEOPLASM MALIGNANT [None]
  - NIGHT SWEATS [None]
  - PROSTATE CANCER METASTATIC [None]
